FAERS Safety Report 12115548 (Version 3)
Quarter: 2016Q2

REPORT INFORMATION
  Report Type: Report from Study
  Country: US (occurrence: US)
  Receive Date: 20160225
  Receipt Date: 20160620
  Transmission Date: 20160815
  Serious: Yes (Hospitalization)
  Sender: FDA-Public Use
  Company Number: US-MALLINCKRODT-T201505522

PATIENT
  Age: 69 Year
  Sex: Female
  Weight: 81 kg

DRUGS (9)
  1. REPOSITORY CORTICOTROPIN INJECTION [Suspect]
     Active Substance: CORTICOTROPIN
     Indication: RHEUMATOID ARTHRITIS
     Dosage: 80 UNITS TWICE WEEKLY
     Route: 030
     Dates: start: 201503, end: 2015
  2. REPOSITORY CORTICOTROPIN INJECTION [Suspect]
     Active Substance: CORTICOTROPIN
     Dosage: 80 UNITS TWICE WEEKLY
     Route: 058
  3. ELIQUIS [Concomitant]
     Active Substance: APIXABAN
  4. PREDNISONE. [Concomitant]
     Active Substance: PREDNISONE
     Dosage: PRN
  5. METOPROLOL. [Concomitant]
     Active Substance: METOPROLOL
  6. ATORVASTATIN [Concomitant]
     Active Substance: ATORVASTATIN
  7. METHOTREXATE [Concomitant]
     Active Substance: METHOTREXATE
     Dosage: 8 PILLS ONCE WEEKLY
  8. REPOSITORY CORTICOTROPIN INJECTION [Suspect]
     Active Substance: CORTICOTROPIN
     Dosage: 80 UNITS TWICE WEEKLY
     Route: 030
     Dates: start: 2015
  9. FOLIC ACID. [Concomitant]
     Active Substance: FOLIC ACID
     Dosage: 1 MG, QD

REACTIONS (10)
  - Irritability [Not Recovered/Not Resolved]
  - Peripheral swelling [Not Recovered/Not Resolved]
  - Gait disturbance [Not Recovered/Not Resolved]
  - Transient ischaemic attack [Recovered/Resolved]
  - Back pain [Recovered/Resolved]
  - Hypoaesthesia [Not Recovered/Not Resolved]
  - Nasopharyngitis [Recovered/Resolved]
  - Muscle spasms [Recovered/Resolved]
  - Stress [Unknown]
  - Erythema [Not Recovered/Not Resolved]

NARRATIVE: CASE EVENT DATE: 201503
